FAERS Safety Report 9425747 (Version 1)
Quarter: 2013Q3

REPORT INFORMATION
  Report Type: Spontaneous
  Country: JP (occurrence: JP)
  Receive Date: 20130729
  Receipt Date: 20130729
  Transmission Date: 20140515
  Serious: Yes (Other)
  Sender: FDA-Public Use
  Company Number: JP-PFIZER INC-2013216521

PATIENT
  Age: 2 Year
  Sex: Male
  Weight: 9.6 kg

DRUGS (2)
  1. HYDROCORTISONE [Suspect]
     Indication: ADRENOGENITAL SYNDROME
     Route: 048
  2. FLUDROCORTISONE [Concomitant]
     Indication: ADRENOGENITAL SYNDROME

REACTIONS (1)
  - Hypercalciuria [Recovered/Resolved]
